FAERS Safety Report 8255156-X (Version None)
Quarter: 2012Q2

REPORT INFORMATION
  Report Type: 
  Country: None (occurrence: None)
  Receive Date: 20120403
  Receipt Date: 20120320
  Transmission Date: 20120825
  Serious: Yes (Hospitalization, Other)
  Sender: FDA-Public Use
  Company Number: GB-ELI_LILLY_AND_COMPANY-GB201203006902

PATIENT
  Age: 51 Year
  Sex: Female

DRUGS (6)
  1. DIAZEPAM [Concomitant]
     Indication: ANXIETY
     Dosage: 10 MG, UNK
  2. DIAZEPAM [Concomitant]
     Dosage: 5 MG, TID
  3. CYMBALTA [Suspect]
     Indication: FIBROMYALGIA
     Dosage: UNK, UNKNOWN
  4. KLONOPIN [Concomitant]
  5. OXYCODONE HCL [Concomitant]
     Dosage: 10 MG, QID
  6. OXYCODONE HCL [Concomitant]
     Dosage: 15 MG, QID

REACTIONS (23)
  - ASTHENIA [None]
  - SELF INJURIOUS BEHAVIOUR [None]
  - SUICIDE ATTEMPT [None]
  - FEAR [None]
  - ANXIETY [None]
  - DRUG WITHDRAWAL SYNDROME [None]
  - WEIGHT DECREASED [None]
  - FATIGUE [None]
  - FIBROMYALGIA [None]
  - SUICIDAL IDEATION [None]
  - TOOTH INJURY [None]
  - NECK PAIN [None]
  - DEPRESSION [None]
  - INTENTIONAL DRUG MISUSE [None]
  - SKIN DISCOMFORT [None]
  - MOANING [None]
  - DECREASED INTEREST [None]
  - INSOMNIA [None]
  - SPINAL OSTEOARTHRITIS [None]
  - TREMOR [None]
  - PAIN [None]
  - TOOTHACHE [None]
  - POOR QUALITY SLEEP [None]
